FAERS Safety Report 13275062 (Version 1)
Quarter: 2017Q1

REPORT INFORMATION
  Report Type: Spontaneous
  Country: US (occurrence: US)
  Receive Date: 20170227
  Receipt Date: 20170227
  Transmission Date: 20170428
  Serious: No
  Sender: FDA-Public Use
  Company Number: US-009507513-1702USA011272

PATIENT
  Sex: Female
  Weight: 104.31 kg

DRUGS (1)
  1. NEXPLANON [Suspect]
     Active Substance: ETONOGESTREL
     Indication: CONTRACEPTION
     Dosage: 1 DF, UNK
     Route: 059
     Dates: start: 20160426, end: 20170223

REACTIONS (7)
  - Muscle spasms [Unknown]
  - Hypertension [Unknown]
  - Weight increased [Unknown]
  - Acne [Unknown]
  - Device breakage [Unknown]
  - Fluid retention [Unknown]
  - Headache [Unknown]
